FAERS Safety Report 8912999 (Version 1)
Quarter: 2012Q4

REPORT INFORMATION
  Report Type: Spontaneous
  Country: US (occurrence: None)
  Receive Date: 20121114
  Receipt Date: 20121114
  Transmission Date: 20130627
  Serious: Yes (Life-Threatening, Disabling)
  Sender: FDA-Public Use
  Company Number: None

PATIENT
  Age: 57 Year
  Sex: Female
  Weight: 62.6 kg

DRUGS (1)
  1. DEXTRAN [Suspect]
     Indication: ANEMIA
     Route: 042
     Dates: start: 20120831, end: 20120831

REACTIONS (11)
  - Anaphylactic reaction [None]
  - Disorientation [None]
  - Malaise [None]
  - Infusion related reaction [None]
  - Bedridden [None]
  - Myalgia [None]
  - Arthralgia [None]
  - Motor dysfunction [None]
  - Depression [None]
  - Skin mass [None]
  - Induration [None]
